FAERS Safety Report 7597427-6 (Version None)
Quarter: 2011Q3

REPORT INFORMATION
  Report Type: 
  Country: None (occurrence: None)
  Receive Date: 20110708
  Receipt Date: 20110627
  Transmission Date: 20111222
  Serious: Yes (Hospitalization, Other)
  Sender: FDA-Public Use
  Company Number: PHHY2010MX56334

PATIENT
  Age: 81 Year
  Sex: Male

DRUGS (2)
  1. CENTRUM SILVER [Concomitant]
  2. DIOVAN [Suspect]
     Indication: HYPERTENSION
     Dosage: 1 DF, 80 MG DAILY
     Route: 048
     Dates: start: 20050101, end: 20100501

REACTIONS (8)
  - HAEMORRHAGE [None]
  - ABDOMINAL PAIN UPPER [None]
  - COLON NEOPLASM [None]
  - AMMONIA INCREASED [None]
  - BLOOD PRESSURE DECREASED [None]
  - COLON CANCER [None]
  - VOMITING [None]
  - NAUSEA [None]
